FAERS Safety Report 11348056 (Version 1)
Quarter: 2015Q3

REPORT INFORMATION
  Report Type: Spontaneous
  Country: US (occurrence: US)
  Receive Date: 20150803
  Receipt Date: 20150803
  Transmission Date: 20151125
  Serious: No
  Sender: FDA-Public Use
  Company Number: US-ELI_LILLY_AND_COMPANY-US201201008905

PATIENT
  Age: 71 Year
  Sex: Male

DRUGS (4)
  1. DIOVAN [Concomitant]
     Active Substance: VALSARTAN
  2. ZYPREXA [Suspect]
     Active Substance: OLANZAPINE
     Dosage: UNK
     Route: 065
     Dates: start: 201111, end: 201112
  3. LATUDA [Concomitant]
     Active Substance: LURASIDONE HYDROCHLORIDE
     Dosage: 40 MG, UNK
     Route: 048
     Dates: start: 20111213
  4. LAMICTAL [Concomitant]
     Active Substance: LAMOTRIGINE

REACTIONS (3)
  - Chills [Unknown]
  - Oedema peripheral [Unknown]
  - Feeling cold [Unknown]

NARRATIVE: CASE EVENT DATE: 201112
